FAERS Safety Report 13064833 (Version 2)
Quarter: 2017Q1

REPORT INFORMATION
  Report Type: Spontaneous
  Country: GB (occurrence: GB)
  Receive Date: 20161227
  Receipt Date: 20170120
  Transmission Date: 20170428
  Serious: Yes (Death)
  Sender: FDA-Public Use
  Company Number: GB-CELGENEUS-GBR-2016055624

PATIENT
  Sex: Male

DRUGS (1)
  1. REVLIMID [Suspect]
     Active Substance: LENALIDOMIDE
     Indication: DIFFUSE LARGE B-CELL LYMPHOMA
     Dosage: 25 MG
     Route: 048
     Dates: start: 20160429

REACTIONS (2)
  - Therapy non-responder [Unknown]
  - Diffuse large B-cell lymphoma [Fatal]
